FAERS Safety Report 17568949 (Version 2)
Quarter: 2021Q1

REPORT INFORMATION
  Report Type: Report from Study
  Country: US (occurrence: US)
  Receive Date: 20200321
  Receipt Date: 20210115
  Transmission Date: 20210419
  Serious: No
  Sender: FDA-Public Use
  Company Number: NVSC2020US072923

PATIENT
  Sex: Female

DRUGS (1)
  1. GLEEVEC [Suspect]
     Active Substance: IMATINIB MESYLATE
     Indication: CHRONIC MYELOID LEUKAEMIA
     Dosage: 400 MG, QD
     Route: 048
     Dates: start: 20190416

REACTIONS (8)
  - Glossodynia [Unknown]
  - Dry mouth [Unknown]
  - Tongue disorder [Unknown]
  - Alopecia [Unknown]
  - Tongue discomfort [Unknown]
  - Lip swelling [Unknown]
  - Dyspnoea [Unknown]
  - Circumoral swelling [Unknown]
